FAERS Safety Report 4285689-2 (Version None)
Quarter: 2004Q1

REPORT INFORMATION
  Report Type: 
  Country: None (occurrence: None)
  Receive Date: 20040203
  Receipt Date: 20040127
  Transmission Date: 20041129
  Serious: Yes (Death)
  Sender: FDA-Public Use
  Company Number: US-JNJFOC-20031102047

PATIENT
  Age: 41 Year
  Sex: Male
  Weight: 70.7611 kg

DRUGS (7)
  1. DURAGESIC [Suspect]
     Indication: CANCER PAIN
     Dosage: 75 UG/HR, 1 IN 1 DAY, TRANSDERMAL
     Route: 062
     Dates: start: 20030527, end: 20030601
  2. MOTRIN [Concomitant]
  3. COMBIVENT [Concomitant]
  4. FLEXERIL [Concomitant]
  5. AMBIEN [Concomitant]
  6. COATED ASPIRIN (ACETYLSALICYLIC ACID) [Concomitant]
  7. DEXAMETHASONE [Concomitant]

REACTIONS (6)
  - GERM CELL CANCER [None]
  - LYMPHOMA [None]
  - METASTASES TO BONE [None]
  - METASTASES TO CENTRAL NERVOUS SYSTEM [None]
  - PHARMACEUTICAL PRODUCT COMPLAINT [None]
  - THYMOMA [None]
